FAERS Safety Report 6975629-7 (Version None)
Quarter: 2010Q3

REPORT INFORMATION
  Report Type: 
  Country: None (occurrence: None)
  Receive Date: 20100910
  Receipt Date: 20100901
  Transmission Date: 20110219
  Serious: Yes (Other)
  Sender: FDA-Public Use
  Company Number: JP-JNJFOC-20100804353

PATIENT
  Age: 78 Year
  Sex: Male

DRUGS (13)
  1. DUROTEP MT [Suspect]
     Indication: PAIN MANAGEMENT
     Route: 062
  2. DUROTEP MT [Suspect]
     Route: 062
  3. DUROTEP MT [Suspect]
     Route: 062
  4. LOXONIN [Concomitant]
  5. GASTER D [Concomitant]
     Route: 048
  6. MAGLAX [Concomitant]
     Route: 048
  7. GASMOTIN [Concomitant]
     Route: 048
  8. SENNOSIDE [Concomitant]
     Route: 048
  9. ULCERLMIN [Concomitant]
     Route: 048
  10. MUCOSOLVAN [Concomitant]
     Route: 048
  11. DECADRON [Concomitant]
  12. PHYSIOSOL-3 [Concomitant]
  13. NEOLAMIN 3B [Concomitant]

REACTIONS (6)
  - ALTERED STATE OF CONSCIOUSNESS [None]
  - DISORIENTATION [None]
  - DRUG EFFECT INCREASED [None]
  - PNEUMONIA [None]
  - PYREXIA [None]
  - SOMNOLENCE [None]
